FAERS Safety Report 8293195-3 (Version None)
Quarter: 2012Q2

REPORT INFORMATION
  Report Type: 
  Country: None (occurrence: None)
  Receive Date: 20120417
  Receipt Date: 20110801
  Transmission Date: 20120825
  Serious: No
  Sender: FDA-Public Use
  Company Number: US-ASTRAZENECA-2011SE20737

PATIENT
  Age: 54 Year
  Sex: Female

DRUGS (5)
  1. PROTONIX [Concomitant]
  2. NEXIUM [Suspect]
     Dosage: 40 MG 2 PER DAY
     Route: 048
  3. MAGNESIUM HYDROXIDE TAB [Concomitant]
  4. CALCIUM CARBONATE [Concomitant]
  5. NEXIUM [Suspect]
     Route: 048

REACTIONS (6)
  - APHAGIA [None]
  - PAIN [None]
  - DYSPEPSIA [None]
  - ADVERSE EVENT [None]
  - ABDOMINAL PAIN UPPER [None]
  - DRUG DOSE OMISSION [None]
